FAERS Safety Report 26083921 (Version 2)
Quarter: 2025Q4

REPORT INFORMATION
  Report Type: Other
  Country: CN (occurrence: CN)
  Receive Date: 20251124
  Receipt Date: 20251126
  Transmission Date: 20260118
  Serious: Yes (Hospitalization, Other)
  Sender: TETRAPHASE PHARMACEUTICALS, INC.
  Company Number: CN-TETRAPHASE PHARMACEUTICALS, INC-2025-ISTX-000227

PATIENT

DRUGS (2)
  1. XERAVA [Suspect]
     Active Substance: ERAVACYCLINE DIHYDROCHLORIDE
     Indication: Pneumonia
     Dosage: 50 MG, BID
     Route: 041
     Dates: start: 20251031, end: 20251110
  2. SODIUM CHLORIDE [Concomitant]
     Active Substance: SODIUM CHLORIDE
     Indication: Product used for unknown indication
     Dosage: 100 MG, BID (FOR SOLVENT)
     Route: 041
     Dates: start: 20251031, end: 20251110

REACTIONS (4)
  - Gastrointestinal haemorrhage [Recovering/Resolving]
  - Blood fibrinogen decreased [Unknown]
  - Prothrombin time prolonged [Unknown]
  - Off label use [Unknown]

NARRATIVE: CASE EVENT DATE: 20251031
